FAERS Safety Report 13814855 (Version 3)
Quarter: 2017Q4

REPORT INFORMATION
  Report Type: Report from Study
  Country: None (occurrence: BE)
  Receive Date: 20170731
  Receipt Date: 20171016
  Transmission Date: 20180320
  Serious: Yes (Hospitalization)
  Sender: FDA-Public Use
  Company Number: BE-ABBVIE-17P-013-2048803-00

PATIENT
  Age: 78 Year
  Sex: Female

DRUGS (14)
  1. TENORETIC [Concomitant]
     Active Substance: ATENOLOL\CHLORTHALIDONE
     Indication: DIURETIC THERAPY
     Dosage: 50/12.5 MG
     Route: 048
     Dates: start: 20170606, end: 20170608
  2. FOSINIL [Concomitant]
     Indication: HYPERTENSION
     Route: 048
     Dates: start: 1987, end: 20170606
  3. CEFAZOLINE [Concomitant]
     Active Substance: CEFAZOLIN SODIUM
     Indication: PROPHYLAXIS
     Route: 042
     Dates: start: 20170607, end: 20170607
  4. ENTEROL [Concomitant]
     Indication: GASTROINTESTINAL DISORDER
     Route: 048
     Dates: start: 20170611, end: 20170812
  5. MOVICOL [Concomitant]
     Active Substance: POLYETHYLENE GLYCOL 3350\POTASSIUM CHLORIDE\SODIUM BICARBONATE\SODIUM CHLORIDE
     Indication: CONSTIPATION
     Dosage: ONLY WHEN CONSTIPATION
     Route: 048
     Dates: start: 20170611
  6. TAVANIC [Concomitant]
     Active Substance: LEVOFLOXACIN
     Indication: STOMA SITE INFECTION
     Route: 048
     Dates: start: 20170628, end: 20170630
  7. ATENOLOL. [Concomitant]
     Active Substance: ATENOLOL
     Indication: HYPERTENSION
     Route: 048
     Dates: start: 1990, end: 20170606
  8. DUODOPA [Suspect]
     Active Substance: CARBIDOPA\LEVODOPA
     Indication: PARKINSON^S DISEASE
     Dosage: MORNING DOSE 15 ML, CONTINUOUS DOSE 4.1 ML/H, EXTRA DOSE 4 ML
     Route: 050
     Dates: start: 20170608
  9. ELDEPRYL [Concomitant]
     Active Substance: SELEGILINE HYDROCHLORIDE
     Indication: PARKINSON^S DISEASE
     Route: 048
     Dates: start: 2002
  10. AUGMENTIN [Concomitant]
     Active Substance: AMOXICILLIN\CLAVULANATE POTASSIUM
     Indication: STOMA SITE INFECTION
     Route: 048
     Dates: start: 20170622, end: 20170628
  11. DICLOFENAC [Concomitant]
     Active Substance: DICLOFENAC
     Indication: ANALGESIC THERAPY
     Route: 048
     Dates: start: 20170306, end: 20170623
  12. STALEVO [Concomitant]
     Active Substance: CARBIDOPA\ENTACAPONE\LEVODOPA
     Indication: PARKINSON^S DISEASE
     Route: 048
     Dates: end: 20170607
  13. MIRAPEXINE [Concomitant]
     Indication: PARKINSON^S DISEASE
     Route: 048
     Dates: end: 20170607
  14. PROLOPA HBS [Concomitant]
     Active Substance: BENSERAZIDE\LEVODOPA
     Indication: PARKINSON^S DISEASE
     Route: 048
     Dates: start: 2002

REACTIONS (1)
  - Mobility decreased [Recovered/Resolved]

NARRATIVE: CASE EVENT DATE: 20170723
